FAERS Safety Report 10553587 (Version 3)
Quarter: 2015Q2

REPORT INFORMATION
  Report Type: Report from Study
  Country: BG (occurrence: BG)
  Receive Date: 20141030
  Receipt Date: 20150626
  Transmission Date: 20150821
  Serious: No
  Sender: FDA-Public Use
  Company Number: BG-UCBSA-2014015437

PATIENT
  Sex: Male
  Weight: 41.3 kg

DRUGS (9)
  1. BLINDED LACOSAMIDE EP [Suspect]
     Active Substance: LACOSAMIDE
     Indication: EPILEPSY
     Dosage: 160 MG, 2X/DAY (BID), NO OF DOSES RECEIVED: 13
     Route: 048
     Dates: start: 20140901, end: 20141006
  2. BLINDED LACOSAMIDE EP [Suspect]
     Active Substance: LACOSAMIDE
     Indication: EPILEPSY
     Dosage: 160 MG, 2X/DAY (BID), NO OF DOSES RECEIVED: 13
     Route: 048
     Dates: start: 20140901, end: 20141006
  3. BLINDED LACOSAMIDE EP [Suspect]
     Active Substance: LACOSAMIDE
     Indication: EPILEPSY
     Dosage: 160 MG, 2X/DAY (BID), NO OF DOSES RECEIVED: 13
     Route: 048
     Dates: start: 20140901, end: 20141006
  4. BLINDED LACOSAMIDE EP [Suspect]
     Active Substance: LACOSAMIDE
     Indication: EPILEPSY
     Dosage: 160 MG, 2X/DAY (BID), NO OF DOSES RECEIVED: 13
     Route: 048
     Dates: start: 20140901, end: 20141006
  5. BLINDED LACOSAMIDE EP [Suspect]
     Active Substance: LACOSAMIDE
     Indication: EPILEPSY
     Dosage: 160 MG, 2X/DAY (BID), NO OF DOSES RECEIVED: 13
     Route: 048
     Dates: start: 20140901, end: 20141006
  6. TRILEPTAL [Concomitant]
     Active Substance: OXCARBAZEPINE
     Indication: EPILEPSY
     Dosage: 300 MG, ONCE DAILY (QD)
     Route: 048
     Dates: start: 20140206
  7. TRILEPTAL [Concomitant]
     Active Substance: OXCARBAZEPINE
     Dosage: 450 MG, ONCE DAILY (QD)
     Route: 048
     Dates: start: 20091212
  8. PLACEBO [Suspect]
     Active Substance: UNSPECIFIED INGREDIENT
     Indication: EPILEPSY
     Dosage: 160 MG, 2X/DAY (BID), NO OF DOSES RECEIVED: 13
     Route: 048
     Dates: start: 20140901, end: 20141006
  9. CONVULEX [Concomitant]
     Indication: EPILEPSY
     Dosage: 300MG BID AND 450 MG OD, 3X/DAY (TID)
     Dates: start: 20110716

REACTIONS (2)
  - Eosinophilia [Recovering/Resolving]
  - Rash [Recovered/Resolved]

NARRATIVE: CASE EVENT DATE: 20140909
